FAERS Safety Report 7576485-9 (Version None)
Quarter: 2011Q2

REPORT INFORMATION
  Report Type: 
  Country: None (occurrence: None)
  Receive Date: 20110628
  Receipt Date: 20110606
  Transmission Date: 20111010
  Serious: Yes (Hospitalization, Other)
  Sender: FDA-Public Use
  Company Number: US-BAYER-2010-001533

PATIENT
  Age: 22 Year
  Sex: Female
  Weight: 68.027 kg

DRUGS (18)
  1. SENNA S [Concomitant]
  2. ALPRAZOLAM [Concomitant]
     Dosage: 0.5 MG, UNK
  3. LORATADINE [Concomitant]
     Dosage: 10 MG, UNK
  4. CARISOPRODOL [Concomitant]
     Dosage: 350 MG, UNK
  5. YAZ [Suspect]
     Indication: PRODUCT USED FOR UNKNOWN INDICATION
     Dosage: UNK
     Dates: start: 20050101, end: 20080101
  6. HYDROCODONE BITARTRATE AND ACETAMINOPHEN [Concomitant]
  7. OXYBUTYNIN [Concomitant]
     Dosage: 5 MG, UNK
  8. GEODON [Concomitant]
     Dosage: 40 MG, UNK
  9. YASMIN [Suspect]
     Indication: PRODUCT USED FOR UNKNOWN INDICATION
     Dosage: UNK
     Dates: start: 20050101, end: 20080101
  10. MEPHYTON [Concomitant]
     Dosage: 5 MG, UNK
  11. FLUOXETINE HCL [Concomitant]
     Dosage: 40 MG, UNK
  12. ROZEREM [Concomitant]
  13. BACTRIM [Concomitant]
     Dosage: 800 MG, UNK
  14. AMITRIPTYLINE HCL [Concomitant]
     Dosage: 150 MG, UNK
  15. HALOPERIDOL [Concomitant]
     Dosage: 0.5 MG, UNK
  16. TRAMADOL HCL [Concomitant]
     Indication: PAIN
     Dosage: 50 MG, UNK
  17. ZEBUTAL [Concomitant]
  18. CLINDAMYCIN [Concomitant]
     Dosage: 150 MG, UNK

REACTIONS (4)
  - GASTROINTESTINAL INJURY [None]
  - CHOLECYSTECTOMY [None]
  - INTRACARDIAC THROMBUS [None]
  - PULMONARY EMBOLISM [None]
